FAERS Safety Report 6786692-0 (Version None)
Quarter: 2010Q2

REPORT INFORMATION
  Report Type: 
  Country: None (occurrence: None)
  Receive Date: 20100623
  Receipt Date: 20100615
  Transmission Date: 20101027
  Serious: Yes (Other)
  Sender: FDA-Public Use
  Company Number: US-PFIZER INC-2010056352

PATIENT
  Sex: Male
  Weight: 78 kg

DRUGS (2)
  1. CHANTIX [Suspect]
     Indication: SMOKING CESSATION THERAPY
     Dosage: UNK
     Route: 048
     Dates: start: 20080121, end: 20080217
  2. CHANTIX [Suspect]
     Dosage: UNK
     Route: 048
     Dates: start: 20080218, end: 20080311

REACTIONS (18)
  - AUTOIMMUNE DISORDER [None]
  - BALANCE DISORDER [None]
  - BARRETT'S OESOPHAGUS [None]
  - BRONCHITIS [None]
  - CEREBELLAR ATAXIA [None]
  - CHOREA [None]
  - CHRONIC INFLAMMATORY DEMYELINATING POLYRADICULONEUROPATHY [None]
  - DYSKINESIA [None]
  - HEPATO-LENTICULAR DEGENERATION [None]
  - HUNTINGTON'S CHOREA [None]
  - INTERVERTEBRAL DISC DEGENERATION [None]
  - LYME DISEASE [None]
  - METAL POISONING [None]
  - MULTIPLE SCLEROSIS [None]
  - MYASTHENIA GRAVIS [None]
  - NEUROLOGICAL SYMPTOM [None]
  - RADICULOPATHY [None]
  - UPPER RESPIRATORY TRACT INFECTION [None]
